FAERS Safety Report 7613716-0 (Version None)
Quarter: 2011Q3

REPORT INFORMATION
  Report Type: 
  Country: None (occurrence: None)
  Receive Date: 20110708
  Receipt Date: 20110630
  Transmission Date: 20111222
  Serious: Yes (Hospitalization, Other)
  Sender: FDA-Public Use
  Company Number: 2010SP025225

PATIENT
  Age: 18 Year
  Sex: Female
  Weight: 108.8633 kg

DRUGS (1)
  1. NUVARING [Suspect]
     Indication: CONTRACEPTION
     Dosage: 1 DF;QM;VAG
     Route: 067
     Dates: start: 20080223, end: 20090118

REACTIONS (22)
  - PARAESTHESIA ORAL [None]
  - HYPOAESTHESIA ORAL [None]
  - MATERNAL EXPOSURE BEFORE PREGNANCY [None]
  - VISION BLURRED [None]
  - DEHYDRATION [None]
  - MIGRAINE [None]
  - BRONCHITIS [None]
  - VOMITING [None]
  - PAIN IN EXTREMITY [None]
  - OEDEMA PERIPHERAL [None]
  - PULMONARY EMBOLISM [None]
  - AFFECTIVE DISORDER [None]
  - FOOD POISONING [None]
  - HYPOAESTHESIA [None]
  - ABORTION INDUCED [None]
  - PREGNANCY [None]
  - HEADACHE [None]
  - DYSMENORRHOEA [None]
  - ABDOMINAL PAIN [None]
  - INFLUENZA [None]
  - URINARY TRACT INFECTION [None]
  - CYSTITIS [None]
